FAERS Safety Report 10637736 (Version 2)
Quarter: 2014Q4

REPORT INFORMATION
  Report Type: Spontaneous
  Country: CO (occurrence: CO)
  Receive Date: 20141208
  Receipt Date: 20141216
  Transmission Date: 20150529
  Serious: Yes (Life-Threatening, Hospitalization)
  Sender: FDA-Public Use
  Company Number: CO-NOVOPROD-430970

PATIENT
  Age: 66 Year
  Sex: Female
  Weight: 68 kg

DRUGS (3)
  1. AMLODIPINO                         /00972401/ [Concomitant]
     Dosage: 1 PER DAY
     Dates: start: 20040101
  2. LEVEMIR [Suspect]
     Active Substance: INSULIN DETEMIR
     Indication: DIABETES MELLITUS
     Dosage: 14 IU, QD
     Route: 065
     Dates: start: 20140708, end: 20141103
  3. ENALAPRIL [Concomitant]
     Active Substance: ENALAPRIL
     Dosage: 1 PER DAY
     Dates: start: 20040101

REACTIONS (1)
  - Cardiac arrest [Recovered/Resolved with Sequelae]

NARRATIVE: CASE EVENT DATE: 20141103
